FAERS Safety Report 4494183-5 (Version None)
Quarter: 2004Q4

REPORT INFORMATION
  Report Type: 
  Country: None (occurrence: None)
  Receive Date: 20041105
  Receipt Date: 20041027
  Transmission Date: 20050328
  Serious: Yes (Hospitalization)
  Sender: FDA-Public Use
  Company Number: AR-ROCHE-384463

PATIENT
  Age: 63 Year
  Sex: Female

DRUGS (5)
  1. CAPECITABINE [Suspect]
     Indication: BREAST CANCER
     Route: 048
     Dates: start: 20040917
  2. IXABEPILONE [Suspect]
     Indication: BREAST CANCER
     Dosage: 1 PER 1 CYCLE.
     Route: 042
     Dates: start: 20040917
  3. LIOTHYRONINE SODIUM [Concomitant]
     Dosage: DRUG NAME REPORTED AS LEVOTIROXINA (LIOTHYRONINE SODIUM + THYROXINE SODIUM).
     Dates: start: 19840615
  4. ESPIRONOLACTONA [Concomitant]
     Dates: start: 20040828, end: 20040923
  5. FUROSEMIDE [Concomitant]
     Dates: start: 20040828, end: 20040923

REACTIONS (2)
  - FEBRILE NEUTROPENIA [None]
  - LUNG INFILTRATION [None]
